FAERS Safety Report 7068031-3 (Version None)
Quarter: 2010Q4

REPORT INFORMATION
  Report Type: 
  Country: None (occurrence: None)
  Receive Date: 20101027
  Receipt Date: 20101027
  Transmission Date: 20110411
  Serious: Yes (Other)
  Sender: FDA-Public Use
  Company Number: None

PATIENT
  Age: 52 Year
  Sex: Female
  Weight: 68.0396 kg

DRUGS (1)
  1. BUDEPRION SR 150 MG TEVA [Suspect]
     Indication: DEPRESSION
     Dosage: TAKE 1 TABLET 2 TIMES A DAY PO
     Route: 048
     Dates: start: 20100619, end: 20100819

REACTIONS (5)
  - DEPRESSION [None]
  - HEADACHE [None]
  - LIBIDO DECREASED [None]
  - PRODUCT SUBSTITUTION ISSUE [None]
  - WEIGHT INCREASED [None]
